FAERS Safety Report 12282597 (Version 1)
Quarter: 2016Q2

REPORT INFORMATION
  Report Type: Spontaneous
  Country: DK (occurrence: DK)
  Receive Date: 20160419
  Receipt Date: 20160419
  Transmission Date: 20160815
  Serious: Yes (Death, Hospitalization)
  Sender: FDA-Public Use
  Company Number: DK-009507513-1604DNK008067

PATIENT
  Age: 62 Year
  Sex: Male

DRUGS (2)
  1. COPEGUS [Suspect]
     Active Substance: RIBAVIRIN
     Indication: HEPATITIS C
     Route: 048
     Dates: start: 20131126, end: 20140109
  2. PEGINTRON [Suspect]
     Active Substance: PEGINTERFERON ALFA-2B
     Indication: HEPATITIS C
     Dates: start: 20131126, end: 20140109

REACTIONS (25)
  - Hepatic function abnormal [Fatal]
  - Abdominal infection [Fatal]
  - Haemodialysis [Recovered/Resolved]
  - Decreased appetite [Unknown]
  - Haemorrhoids [Unknown]
  - Hepatorenal syndrome [Unknown]
  - Pericardial effusion [Unknown]
  - Abdominal cavity drainage [Unknown]
  - Penile oedema [Unknown]
  - General physical health deterioration [Unknown]
  - Urticaria [Unknown]
  - Acute kidney injury [Fatal]
  - Dyspnoea [Unknown]
  - Gastrointestinal tube insertion [Unknown]
  - Transfusion [Unknown]
  - Abdominal pain upper [Unknown]
  - Urinary retention [Unknown]
  - Abdominal distension [Unknown]
  - Dysuria [Unknown]
  - Plasmapheresis [Recovered/Resolved]
  - Hepatic failure [Fatal]
  - Hepatic failure [Unknown]
  - Jaundice [Unknown]
  - Pericardial drainage [Unknown]
  - Cardiovascular insufficiency [Unknown]

NARRATIVE: CASE EVENT DATE: 201401
